FAERS Safety Report 5894176-7 (Version None)
Quarter: 2008Q3

REPORT INFORMATION
  Report Type: 
  Country: None (occurrence: None)
  Receive Date: 20080923
  Receipt Date: 20080218
  Transmission Date: 20090109
  Serious: No
  Sender: FDA-Public Use
  Company Number: US-ASTRAZENECA-2008UW03341

PATIENT
  Age: 58 Year
  Sex: Female
  Weight: 49.9 kg

DRUGS (5)
  1. SEROQUEL [Suspect]
     Indication: BIPOLAR DISORDER
     Route: 048
     Dates: start: 20070801
  2. HORMONES [Concomitant]
  3. FLURAZEPAM [Concomitant]
  4. HYPERTENSION MEDICATION [Concomitant]
  5. SOMA [Concomitant]
     Indication: MUSCULOSKELETAL PAIN

REACTIONS (2)
  - FACE OEDEMA [None]
  - LIP SWELLING [None]
